FAERS Safety Report 4988197-6 (Version None)
Quarter: 2006Q2

REPORT INFORMATION
  Report Type: 
  Country: None (occurrence: None)
  Receive Date: 20060501
  Receipt Date: 20060421
  Transmission Date: 20061013
  Serious: Yes (Hospitalization, Disabling)
  Sender: FDA-Public Use
  Company Number: US-MERCK-0604USA03649

PATIENT
  Age: 40 Year
  Sex: Female
  Weight: 82 kg

DRUGS (16)
  1. VIOXX [Suspect]
     Indication: ARTHRITIS
     Route: 048
     Dates: start: 19990701, end: 20020301
  2. VIOXX [Suspect]
     Route: 048
     Dates: start: 19990701, end: 20020301
  3. HYDROCHLOROTHIAZIDE [Concomitant]
     Route: 065
  4. BUSPAR [Concomitant]
     Route: 065
  5. TOPROL-XL [Concomitant]
     Route: 065
  6. AMITRIPTYLIN [Concomitant]
     Route: 065
  7. DIOVAN [Concomitant]
     Route: 065
  8. NEURONTIN [Concomitant]
     Route: 065
  9. WARFARIN [Concomitant]
     Route: 065
  10. SODIUM (UNSPECIFIED) [Concomitant]
     Route: 065
  11. DEPAKOTE [Concomitant]
     Route: 065
  12. AZATHIOPRINE [Concomitant]
     Route: 065
  13. BUSPIRONE HYDROCHLORIDE [Concomitant]
     Route: 065
  14. TRICOR [Concomitant]
     Route: 065
  15. HYZAAR [Concomitant]
     Route: 065
  16. VERELAN [Concomitant]
     Route: 065

REACTIONS (2)
  - ANXIETY [None]
  - CEREBROVASCULAR ACCIDENT [None]
